FAERS Safety Report 9458376 (Version 4)
Quarter: 2014Q1

REPORT INFORMATION
  Report Type: Spontaneous
  Country: US (occurrence: US)
  Receive Date: 20130814
  Receipt Date: 20140227
  Transmission Date: 20141002
  Serious: Yes (Hospitalization)
  Sender: FDA-Public Use
  Company Number: US-BAYER-2013-097818

PATIENT
  Age: 31 Year
  Sex: Female
  Weight: 88.44 kg

DRUGS (4)
  1. MIRENA [Suspect]
     Indication: CONTRACEPTION
     Dosage: 20 MCG/24HR, CONT
     Route: 015
     Dates: start: 20091005, end: 20120720
  2. PRENATAL VITAMINS [Concomitant]
     Dosage: UNK
     Dates: start: 2009
  3. RANITIDINE [Concomitant]
     Dosage: UNK
     Dates: start: 2009
  4. CLARITIN [Concomitant]
     Dosage: 10 MG, UNK

REACTIONS (7)
  - Uterine perforation [None]
  - Pregnancy with contraceptive device [Recovered/Resolved]
  - Drug ineffective [None]
  - Injury [None]
  - Pain [None]
  - Emotional distress [None]
  - Device issue [None]
